FAERS Safety Report 21909698 (Version 1)
Quarter: 2023Q1

REPORT INFORMATION
  Report Type: Spontaneous
  Country: CN (occurrence: CN)
  Receive Date: 20230125
  Receipt Date: 20230125
  Transmission Date: 20230418
  Serious: Yes (Hospitalization, Other)
  Sender: FDA-Public Use
  Company Number: CN-BAXTER-2023BAX010973

PATIENT
  Age: 65 Year
  Sex: Male

DRUGS (17)
  1. CYCLOPHOSPHAMIDE [Suspect]
     Active Substance: CYCLOPHOSPHAMIDE
     Indication: Acute lymphocytic leukaemia
     Dosage: VDPCP INDUCTION THERAPY- 1500 MG, D1
     Route: 065
     Dates: start: 20210720, end: 20210720
  2. CYCLOPHOSPHAMIDE [Suspect]
     Active Substance: CYCLOPHOSPHAMIDE
     Dosage: VDPCP INDUCTION THERAPY
     Route: 065
     Dates: start: 20211119
  3. IDARUBICIN HYDROCHLORIDE [Suspect]
     Active Substance: IDARUBICIN HYDROCHLORIDE
     Indication: Acute lymphocytic leukaemia
     Dosage: VDPCP INDUCTION THERAPY- 18 MG, D1
     Route: 065
     Dates: start: 20210720, end: 20210720
  4. IDARUBICIN HYDROCHLORIDE [Suspect]
     Active Substance: IDARUBICIN HYDROCHLORIDE
     Dosage: VDPCP INDUCTION THERAPY- 15 MG, D2-3
     Route: 065
     Dates: start: 20210721, end: 20210722
  5. IDARUBICIN HYDROCHLORIDE [Suspect]
     Active Substance: IDARUBICIN HYDROCHLORIDE
     Dosage: VDPCP INDUCTION THERAPY
     Route: 065
     Dates: start: 20211119
  6. VINCRISTINE [Suspect]
     Active Substance: VINCRISTINE
     Indication: Acute lymphocytic leukaemia
     Dosage: VDPCP INDUCTION THERAPY- 2 MG, D1, 8, 15, 22
     Route: 065
     Dates: start: 20210720, end: 20210810
  7. VINCRISTINE [Suspect]
     Active Substance: VINCRISTINE
     Dosage: VDPCP INDUCTION THERAPY
     Route: 065
     Dates: start: 20211119
  8. METHYLPREDNISOLONE [Suspect]
     Active Substance: METHYLPREDNISOLONE
     Indication: Acute lymphocytic leukaemia
     Dosage: VDPCP INDUCTION THERAPY- 85 MG, D1-14
     Route: 065
     Dates: start: 20210720, end: 20210802
  9. METHYLPREDNISOLONE [Suspect]
     Active Substance: METHYLPREDNISOLONE
     Dosage: VDPCP INDUCTION THERAPY
     Route: 065
     Dates: start: 20211119
  10. CYTARABINE [Suspect]
     Active Substance: CYTARABINE
     Indication: Acute lymphocytic leukaemia
     Dosage: 50 MG
     Route: 037
     Dates: start: 20210816
  11. METHOTREXATE [Suspect]
     Active Substance: METHOTREXATE
     Indication: Acute lymphocytic leukaemia
     Dosage: 10 MG
     Route: 037
     Dates: start: 20210816
  12. DEXAMETHASONE [Suspect]
     Active Substance: DEXAMETHASONE
     Indication: Acute lymphocytic leukaemia
     Dosage: 10 MG
     Route: 037
     Dates: start: 20210816
  13. FLUMATINIB [Suspect]
     Active Substance: FLUMATINIB
     Indication: Acute lymphocytic leukaemia
     Dosage: 0.6 G (ALSO REPORTED AS 600 MG), QD IN 2021
     Route: 048
  14. VINDESINE [Suspect]
     Active Substance: VINDESINE
     Indication: Acute lymphocytic leukaemia
     Dosage: 2 COURSES OF VP CHEMOTHERAPY- 4 MG, D1
     Route: 065
     Dates: start: 20210913, end: 20210913
  15. VINDESINE [Suspect]
     Active Substance: VINDESINE
     Dosage: 2 COURSES OF VP CHEMOTHERAPY- 4 MG, D1
     Route: 065
     Dates: start: 20211015, end: 20211015
  16. PREDNISONE [Suspect]
     Active Substance: PREDNISONE
     Indication: Acute lymphocytic leukaemia
     Dosage: 2 COURSES OF VP CHEMOTHERAPY- 80 MG, D1
     Route: 065
     Dates: start: 20210913, end: 20210913
  17. PREDNISONE [Suspect]
     Active Substance: PREDNISONE
     Dosage: 2 COURSES OF VP CHEMOTHERAPY- 80 MG, QD D1, D2-7
     Route: 065
     Dates: start: 20211015, end: 20211021

REACTIONS (6)
  - Acute lymphocytic leukaemia recurrent [Unknown]
  - Capillary leak syndrome [Unknown]
  - Klebsiella sepsis [Unknown]
  - Myelosuppression [Unknown]
  - Electrolyte imbalance [Unknown]
  - Hepatic function abnormal [Unknown]

NARRATIVE: CASE EVENT DATE: 20211119
